FAERS Safety Report 12802726 (Version 1)
Quarter: 2016Q4

REPORT INFORMATION
  Report Type: Spontaneous
  Country: US (occurrence: US)
  Receive Date: 20161001
  Receipt Date: 20161001
  Transmission Date: 20170207
  Serious: Yes (Hospitalization, Other)
  Sender: FDA-Public Use
  Company Number: None

PATIENT
  Age: 7 Month
  Sex: Male
  Weight: 65.25 kg

DRUGS (10)
  1. VITAMINS [Concomitant]
     Active Substance: VITAMINS
  2. IBUPROFEN. [Concomitant]
     Active Substance: IBUPROFEN
  3. NEPROXIN [Concomitant]
  4. CBD - OIL [Concomitant]
  5. RISPERDAL [Suspect]
     Active Substance: RISPERIDONE
  6. LEGAL MARIJUANA [Concomitant]
  7. TYLENOL [Concomitant]
     Active Substance: ACETAMINOPHEN
  8. SERIQUIL [Concomitant]
  9. XANAX [Concomitant]
     Active Substance: ALPRAZOLAM
  10. KRATOM [Concomitant]
     Active Substance: HERBALS

REACTIONS (2)
  - Paralysis [None]
  - Apparent death [None]

NARRATIVE: CASE EVENT DATE: 20160824
